FAERS Safety Report 17677615 (Version 3)
Quarter: 2021Q3

REPORT INFORMATION
  Report Type: Report from Study
  Country: US (occurrence: US)
  Receive Date: 20200416
  Receipt Date: 20210903
  Transmission Date: 20211014
  Serious: Yes (Other)
  Sender: FDA-Public Use
  Company Number: NVSC2020US102974

PATIENT
  Sex: Male

DRUGS (1)
  1. ENTRESTO [Suspect]
     Active Substance: SACUBITRIL\VALSARTAN
     Indication: CARDIAC FAILURE
     Dosage: 1 DF, ONCE2SDO (97/103 MG)
     Route: 048
     Dates: start: 20170201

REACTIONS (3)
  - Atrial fibrillation [Unknown]
  - Fatigue [Unknown]
  - Muscular weakness [Unknown]
